FAERS Safety Report 18611646 (Version 2)
Quarter: 2020Q4

REPORT INFORMATION
  Report Type: Report from Study
  Country: AU (occurrence: AU)
  Receive Date: 20201214
  Receipt Date: 20201231
  Transmission Date: 20210114
  Serious: Yes (Hospitalization)
  Sender: FDA-Public Use
  Company Number: AU-SECURA BIO, INC.-2020AU008063

PATIENT

DRUGS (7)
  1. PARACETAMOL [Concomitant]
     Active Substance: ACETAMINOPHEN
     Indication: PYREXIA
     Dosage: 5 MG/KG, PRN
     Route: 048
     Dates: start: 20200413
  2. BACTRIM [Concomitant]
     Active Substance: SULFAMETHOXAZOLE\TRIMETHOPRIM
     Indication: PROPHYLAXIS
     Dosage: 3 ML, BID, (SAT AND SUN)
     Route: 048
     Dates: start: 20200504
  3. LBH589 [Suspect]
     Active Substance: PANOBINOSTAT
     Dosage: 6 MG/M2
     Route: 065
     Dates: start: 20201015
  4. LBH589 [Suspect]
     Active Substance: PANOBINOSTAT
     Indication: RHABDOID TUMOUR
     Dosage: 8 MG/M2
     Route: 065
     Dates: start: 20200603, end: 20201009
  5. CYCLIZINE [Concomitant]
     Active Substance: CYCLIZINE
     Indication: VOMITING
     Dosage: 10 MG, PRN
     Route: 048
     Dates: start: 20200409
  6. ONDANSETRON [Concomitant]
     Active Substance: ONDANSETRON
     Indication: VOMITING
     Dosage: 8 MG, PRN
     Route: 048
     Dates: start: 20200508
  7. PARACETAMOL [Concomitant]
     Active Substance: ACETAMINOPHEN
     Indication: PAIN

REACTIONS (3)
  - Sepsis [Recovered/Resolved]
  - Pyrexia [Recovered/Resolved]
  - Tachycardia [Recovered/Resolved]

NARRATIVE: CASE EVENT DATE: 20201205
